FAERS Safety Report 5036249-7 (Version None)
Quarter: 2006Q2

REPORT INFORMATION
  Report Type: 
  Country: None (occurrence: None)
  Receive Date: 20060601
  Receipt Date: 20060428
  Transmission Date: 20061013
  Serious: No
  Sender: FDA-Public Use
  Company Number: US200605000158

PATIENT
  Age: 65 Year
  Sex: Female

DRUGS (4)
  1. CYMBALTA [Suspect]
     Indication: NERVOUSNESS
     Dosage: 20 MG, DAILY (1/D)
     Dates: start: 20060328, end: 20060417
  2. PROZAC [Suspect]
  3. XANAX /USA/ (ALPRAZOLAM) [Concomitant]
  4. DICYCLOMINE HCL [Concomitant]

REACTIONS (3)
  - ABDOMINAL DISTENSION [None]
  - FLATULENCE [None]
  - INFLUENZA LIKE ILLNESS [None]
